FAERS Safety Report 8822594 (Version 1)
Quarter: 2012Q4

REPORT INFORMATION
  Report Type: 
  Country: ES (occurrence: ES)
  Receive Date: 20121003
  Receipt Date: 20121003
  Transmission Date: 20130627
  Serious: Yes (Other)
  Sender: FDA-Public Use
  Company Number: ES-ACTELION-A-CH2012-68811

PATIENT
  Age: 3 Year
  Sex: Female
  Weight: 12 kg

DRUGS (6)
  1. TRACLEER [Suspect]
     Indication: PULMONARY HYPERTENSION
     Dosage: 31.25 mg, od
     Route: 048
     Dates: start: 200903, end: 20090529
  2. HYDROCHLOROTHIAZIDE [Concomitant]
     Dosage: 8 mg, UNK
     Dates: start: 200703
  3. CAPTOPRIL [Concomitant]
     Dosage: 4 mg, UNK
     Dates: start: 200703
  4. ALDACTONE [Concomitant]
     Dosage: 12.5 mg, UNK
     Dates: start: 200703
  5. DIGOXIN [Concomitant]
     Dosage: 0.8 mg, UNK
     Dates: start: 200703
  6. SILDENAFIL [Concomitant]
     Dosage: 10 mg, UNK
     Dates: start: 200802

REACTIONS (2)
  - Pyrexia [Recovering/Resolving]
  - Vomiting [Unknown]
